FAERS Safety Report 12762822 (Version 1)
Quarter: 2016Q3

REPORT INFORMATION
  Report Type: Spontaneous
  Country: CN (occurrence: CN)
  Receive Date: 20160920
  Receipt Date: 20160920
  Transmission Date: 20161109
  Serious: Yes (Other)
  Sender: FDA-Public Use
  Company Number: CN-BAYER-2016-180993

PATIENT
  Age: 75 Year
  Sex: Male

DRUGS (1)
  1. AVELOX [Suspect]
     Active Substance: MOXIFLOXACIN HYDROCHLORIDE
     Dosage: UNK

REACTIONS (7)
  - Nausea [None]
  - Feeding disorder [None]
  - Haematemesis [None]
  - Sputum purulent [None]
  - Cough [None]
  - Eating disorder [None]
  - Product use issue [None]

NARRATIVE: CASE EVENT DATE: 201609
